FAERS Safety Report 4408791-0 (Version None)
Quarter: 2004Q3

REPORT INFORMATION
  Report Type: 
  Country: None (occurrence: None)
  Receive Date: 20040727
  Receipt Date: 20040604
  Transmission Date: 20050211
  Serious: No
  Sender: FDA-Public Use
  Company Number: US-GLAXOSMITHKLINE-A0513462A

PATIENT
  Age: 52 Year
  Sex: Male

DRUGS (4)
  1. LEXIVA [Suspect]
     Indication: HIV INFECTION
     Dosage: 700MG TWICE PER DAY
     Route: 048
  2. ZERIT [Concomitant]
  3. EPIVIR [Concomitant]
  4. NORVIR [Concomitant]

REACTIONS (1)
  - WEIGHT INCREASED [None]
